FAERS Safety Report 9154384 (Version 1)
Quarter: 2013Q1

REPORT INFORMATION
  Report Type: Spontaneous
  Country: US (occurrence: None)
  Receive Date: 20130308
  Receipt Date: 20130308
  Transmission Date: 20140127
  Serious: Yes (Other)
  Sender: FDA-Public Use
  Company Number: None

PATIENT
  Age: 66 Year
  Sex: Male
  Weight: 86.18 kg

DRUGS (2)
  1. FINASTERIDE 5 MG AUROBINDO [Suspect]
     Indication: ALOPECIA
     Dosage: 1 1/4 MG -1/4 OF 5 MG TABLET
     Route: 048
  2. FINASTERIDE 5 MG AUROBINDO [Suspect]
     Indication: ALOPECIA
     Dosage: 1 1/4 MG -1/4 OF 5 MG TABLET
     Route: 048

REACTIONS (2)
  - Erectile dysfunction [None]
  - Alopecia [None]
